FAERS Safety Report 5867954-8 (Version None)
Quarter: 2008Q3

REPORT INFORMATION
  Report Type: 
  Country: None (occurrence: None)
  Receive Date: 20080902
  Receipt Date: 20080826
  Transmission Date: 20090109
  Serious: Yes (Other)
  Sender: FDA-Public Use
  Company Number: US-BOEHRINGER INGELHEIM GMBH, GERMANY-2008-BP-13543BP

PATIENT
  Sex: Male

DRUGS (5)
  1. SPIRIVA [Suspect]
     Indication: OXYGEN SATURATION
     Route: 055
     Dates: start: 20080401
  2. FAMOTIDINE [Concomitant]
  3. SULINDAC [Concomitant]
     Indication: ARTHROPATHY
  4. GLUCOSAMINE [Concomitant]
     Indication: ARTHROPATHY
  5. TERAZOSIN HCL [Concomitant]
     Indication: PROSTATOMEGALY

REACTIONS (4)
  - ALOPECIA [None]
  - CONSTIPATION [None]
  - CORONARY ARTERY BYPASS [None]
  - PULMONARY OEDEMA [None]
